FAERS Safety Report 4505102-7 (Version None)
Quarter: 2004Q4

REPORT INFORMATION
  Report Type: 
  Country: None (occurrence: None)
  Receive Date: 20041119
  Receipt Date: 20041108
  Transmission Date: 20050328
  Serious: Yes (Hospitalization, Other)
  Sender: FDA-Public Use
  Company Number: FR-ABBOTT-04P-056-0280063-00

PATIENT
  Age: 77 Year
  Sex: Male

DRUGS (2)
  1. VALPROIC ACID [Suspect]
     Indication: STATUS EPILEPTICUS
     Route: 048
     Dates: start: 20031001, end: 20040924
  2. CARBAMAZEPINE [Suspect]
     Indication: EPILEPSY
     Route: 048
     Dates: start: 20040823, end: 20040917

REACTIONS (12)
  - CEREBRAL HYGROMA [None]
  - CHEST X-RAY ABNORMAL [None]
  - CONDITION AGGRAVATED [None]
  - CONVULSION [None]
  - DISEASE RECURRENCE [None]
  - ENDOCARDITIS [None]
  - GENERAL PHYSICAL HEALTH DETERIORATION [None]
  - HEPATITIS CHOLESTATIC [None]
  - INTERSTITIAL LUNG DISEASE [None]
  - PULMONARY ALVEOLAR HAEMORRHAGE [None]
  - PYREXIA [None]
  - URINARY INCONTINENCE [None]
